FAERS Safety Report 6710640-2 (Version None)
Quarter: 2010Q2

REPORT INFORMATION
  Report Type: 
  Country: None (occurrence: None)
  Receive Date: 20100504
  Receipt Date: 20100504
  Transmission Date: 20101027
  Serious: Yes (Hospitalization, Disabling)
  Sender: FDA-Public Use
  Company Number: None

PATIENT
  Age: 72 Year
  Sex: Female
  Weight: 154.223 kg

DRUGS (12)
  1. DEFINITY [Suspect]
     Indication: ECHOCARDIOGRAM
     Dosage: 1 TIME INJECTED INTO IV
     Route: 042
     Dates: start: 20091210
  2. VANCOMYCIN [Concomitant]
  3. LASIX [Concomitant]
  4. POTASSIUM [Concomitant]
  5. LIPITOR [Concomitant]
  6. DIOVAN [Concomitant]
  7. GLYBURIDE [Concomitant]
  8. TOPROL-XL [Concomitant]
  9. ACTOS [Concomitant]
  10. ALLOPURINOL [Concomitant]
  11. INJECTED INSULIN [Concomitant]
  12. TYLENOL-500 [Concomitant]

REACTIONS (18)
  - ABDOMINAL PAIN [None]
  - ASTHENIA [None]
  - BACK PAIN [None]
  - BLADDER PAIN [None]
  - BLOOD URINE [None]
  - BURNING SENSATION [None]
  - CELLULITIS [None]
  - CHROMATURIA [None]
  - DIZZINESS [None]
  - GAIT DISTURBANCE [None]
  - LOCALISED INFECTION [None]
  - MALAISE [None]
  - NAUSEA [None]
  - RASH PRURITIC [None]
  - RENAL FAILURE [None]
  - RETCHING [None]
  - SENSATION OF PRESSURE [None]
  - TREMOR [None]
